FAERS Safety Report 9070905 (Version 7)
Quarter: 2014Q1

REPORT INFORMATION
  Report Type: Spontaneous
  Country: US (occurrence: US)
  Receive Date: 20130129
  Receipt Date: 20140226
  Transmission Date: 20141002
  Serious: Yes (Hospitalization)
  Sender: FDA-Public Use
  Company Number: US-GLAXOSMITHKLINE-A0982499A

PATIENT
  Age: 22 Year
  Sex: Female

DRUGS (9)
  1. FLOLAN [Suspect]
     Indication: COR PULMONALE CHRONIC
     Dosage: 72NGKM CONTINUOUS
     Route: 042
     Dates: start: 20090922
  2. THYROID MEDICATION [Suspect]
     Indication: BASEDOW^S DISEASE
  3. CHLORAPREP [Suspect]
     Route: 061
  4. LETAIRIS [Concomitant]
     Indication: PULMONARY HYPERTENSION
     Dosage: 5MG PER DAY
     Route: 048
     Dates: start: 20100806
  5. METHIMAZOLE [Concomitant]
  6. LASIX [Concomitant]
  7. ALDACTAZIDE [Concomitant]
  8. ADCIRCA [Concomitant]
  9. COUMADIN [Concomitant]

REACTIONS (12)
  - Investigation [Recovered/Resolved]
  - Pain in jaw [Unknown]
  - Rash [Unknown]
  - Flushing [Unknown]
  - Diarrhoea [Unknown]
  - Musculoskeletal pain [Unknown]
  - Thyroid disorder [Unknown]
  - Full blood count abnormal [Unknown]
  - Hyperhidrosis [Unknown]
  - Hypersensitivity [Unknown]
  - Device related infection [Unknown]
  - Clostridium difficile infection [Not Recovered/Not Resolved]
